FAERS Safety Report 9563673 (Version 3)
Quarter: 2013Q4

REPORT INFORMATION
  Report Type: Spontaneous
  Country: NL (occurrence: None)
  Receive Date: 20130926
  Receipt Date: 20131021
  Transmission Date: 20140711
  Serious: Yes (Hospitalization)
  Sender: FDA-Public Use
  Company Number: 2013P1019509

PATIENT
  Age: 60 Year
  Sex: Male

DRUGS (2)
  1. PARNATE [Suspect]
     Indication: DEPRESSION
  2. TRAZOLAN [Suspect]
     Dosage: X1

REACTIONS (2)
  - Serotonin syndrome [None]
  - Drug interaction [None]
